FAERS Safety Report 19602585 (Version 1)
Quarter: 2021Q3

REPORT INFORMATION
  Report Type: Spontaneous
  Country: AU (occurrence: AU)
  Receive Date: 20210723
  Receipt Date: 20210723
  Transmission Date: 20211014
  Serious: Yes (Other)
  Sender: FDA-Public Use
  Company Number: AU-AMERICAN REGENT INC-2021001878

PATIENT
  Age: 38 Year
  Sex: Female

DRUGS (4)
  1. FERINJECT [Suspect]
     Active Substance: FERRIC CARBOXYMALTOSE
     Dosage: 500 MG
     Dates: start: 20210204, end: 20210204
  2. FERINJECT [Suspect]
     Active Substance: FERRIC CARBOXYMALTOSE
     Indication: PRODUCT USED FOR UNKNOWN INDICATION
     Dosage: 500 MG
  3. FERINJECT [Suspect]
     Active Substance: FERRIC CARBOXYMALTOSE
     Dosage: 500 MG
     Dates: start: 2015, end: 2015
  4. FERINJECT [Suspect]
     Active Substance: FERRIC CARBOXYMALTOSE
     Dosage: 500 MG
     Dates: start: 2018, end: 2018

REACTIONS (11)
  - Sleep disorder [Unknown]
  - Chest discomfort [Unknown]
  - Myalgia [Unknown]
  - Anxiety [Unknown]
  - Headache [Unknown]
  - Musculoskeletal chest pain [Unknown]
  - Bone pain [Unknown]
  - Fatigue [Unknown]
  - Palpitations [Recovered/Resolved]
  - Nausea [Unknown]
  - Asthenia [Unknown]

NARRATIVE: CASE EVENT DATE: 2021
